FAERS Safety Report 5103377-7 (Version None)
Quarter: 2006Q3

REPORT INFORMATION
  Report Type: 
  Country: None (occurrence: None)
  Receive Date: 20060908
  Receipt Date: 20060825
  Transmission Date: 20061208
  Serious: Yes (Other)
  Sender: FDA-Public Use
  Company Number: 2006S1008175

PATIENT
  Sex: Female

DRUGS (1)
  1. LEVOTHYROXINE SODIUM [Suspect]
     Indication: HYPOTHYROIDISM
     Dosage: 25 UG/HR; QD; PO
     Route: 048
     Dates: start: 20060818, end: 20060828

REACTIONS (11)
  - ABDOMINAL PAIN [None]
  - DRUG TOXICITY [None]
  - ERYTHEMA [None]
  - HYPOTENSION [None]
  - PHARMACEUTICAL PRODUCT COMPLAINT [None]
  - PRURITUS [None]
  - PYREXIA [None]
  - RASH [None]
  - TACHYCARDIA [None]
  - THYROID DISORDER [None]
  - TREMOR [None]
